FAERS Safety Report 8929008 (Version 1)
Quarter: 2012Q4

REPORT INFORMATION
  Report Type: 
  Country: GB (occurrence: GB)
  Receive Date: 20121127
  Receipt Date: 20121127
  Transmission Date: 20130627
  Serious: Yes (Life-Threatening)
  Sender: FDA-Public Use
  Company Number: GB-009507513-1211GBR009971

PATIENT
  Age: 42 Year
  Sex: Female

DRUGS (1)
  1. SITAGLIPTIN PHOSPHATE [Suspect]
     Indication: DIABETES MELLITUS
     Dosage: 100 mg, UNK
     Route: 048
     Dates: start: 201204, end: 201211

REACTIONS (2)
  - Depression [Not Recovered/Not Resolved]
  - Suicidal ideation [Not Recovered/Not Resolved]
